FAERS Safety Report 6770484-2 (Version None)
Quarter: 2010Q2

REPORT INFORMATION
  Report Type: 
  Country: None (occurrence: None)
  Receive Date: 20100615
  Receipt Date: 20100611
  Transmission Date: 20101027
  Serious: Yes (Other)
  Sender: FDA-Public Use
  Company Number: JP-EISAI INC.-E2090-01203-SPO-JP

PATIENT
  Age: 30 Year
  Sex: Female

DRUGS (2)
  1. EXCEGRAN [Suspect]
     Indication: DRUG USE FOR UNKNOWN INDICATION
     Route: 048
  2. ITRIZOLE [Concomitant]

REACTIONS (1)
  - DRUG LEVEL INCREASED [None]
